FAERS Safety Report 18861555 (Version 1)
Quarter: 2021Q1

REPORT INFORMATION
  Report Type: Spontaneous
  Country: US (occurrence: US)
  Receive Date: 20210208
  Receipt Date: 20210208
  Transmission Date: 20210420
  Serious: Yes (Other)
  Sender: FDA-Public Use
  Company Number: US-BAYER-2021-048052

PATIENT
  Sex: Male

DRUGS (2)
  1. ALEVE [Suspect]
     Active Substance: NAPROXEN SODIUM
     Indication: EPICONDYLITIS
     Dosage: UNK
     Route: 048
  2. VOLTAREN [DICLOFENAC] [Suspect]
     Active Substance: DICLOFENAC SODIUM
     Indication: EPICONDYLITIS
     Dosage: UNK

REACTIONS (8)
  - Burning sensation [None]
  - Disorientation [None]
  - Weight decreased [None]
  - Mental disorder [None]
  - Prostate cancer [None]
  - Erectile dysfunction [None]
  - Gastrointestinal sounds abnormal [Recovered/Resolved]
  - Loss of personal independence in daily activities [Not Recovered/Not Resolved]
